FAERS Safety Report 7958346-6 (Version None)
Quarter: 2011Q4

REPORT INFORMATION
  Report Type: 
  Country: None (occurrence: None)
  Receive Date: 20111205
  Receipt Date: 20111128
  Transmission Date: 20120403
  Serious: Yes (Hospitalization, Other)
  Sender: FDA-Public Use
  Company Number: PT-ABBOTT-11P-130-0876600-00

PATIENT
  Sex: Female

DRUGS (11)
  1. OMEPRAZOLE [Concomitant]
     Indication: GASTRIC DISORDER
     Dates: start: 20090514
  2. ISONIAZID W/PYRIDOXINE [Concomitant]
     Indication: PRODUCT USED FOR UNKNOWN INDICATION
     Dosage: 300 MG + 150 MG
     Dates: start: 20110201
  3. HUMIRA [Suspect]
     Indication: RHEUMATOID ARTHRITIS
     Route: 058
     Dates: start: 20110413
  4. HUMIRA [Suspect]
     Dates: start: 20110902
  5. VITAMIN D [Concomitant]
     Indication: OSTEOPOROSIS
     Dates: start: 20090514
  6. METHOTREXATE [Concomitant]
     Indication: RHEUMATOID ARTHRITIS
     Dates: start: 20110201, end: 20110901
  7. PREDNISOLONE [Concomitant]
     Indication: RHEUMATOID ARTHRITIS
     Dates: start: 20110401, end: 20110601
  8. OMEPRAZOLE [Concomitant]
     Indication: PROPHYLAXIS
  9. CALCIUM [Concomitant]
     Indication: OSTEOPOROSIS
     Dates: start: 20090514
  10. IBANDRONATE SODIUM [Concomitant]
     Indication: OSTEOPOROSIS
     Dates: start: 20090514
  11. PREDNISOLONE [Concomitant]
     Dates: start: 20100601

REACTIONS (4)
  - INTERSTITIAL LUNG DISEASE [None]
  - PNEUMONIA [None]
  - PNEUMOTHORAX [None]
  - PULMONARY FIBROSIS [None]
